FAERS Safety Report 21074386 (Version 1)
Quarter: 2022Q3

REPORT INFORMATION
  Report Type: Spontaneous
  Country: GB (occurrence: None)
  Receive Date: 20220713
  Receipt Date: 20220713
  Transmission Date: 20221027
  Serious: Yes (Other)
  Sender: FDA-Public Use
  Company Number: GB-REC-002753

PATIENT
  Age: 71 Year
  Sex: Female

DRUGS (8)
  1. CIPROFLOXACIN [Suspect]
     Active Substance: CIPROFLOXACIN
     Indication: Eczema
     Dosage: TWO DROPS
     Dates: start: 20220214
  2. BETAMETHASONE SODIUM PHOSPHATE [Suspect]
     Active Substance: BETAMETHASONE SODIUM PHOSPHATE
     Indication: Eczema
     Dosage: TWO TO THREE DROPS EVERY TWO TO THREE HOURS, REDUCING GRADUALLY, FOR A WEEK
     Route: 065
     Dates: start: 20211118
  3. BETAMETHASONE SODIUM PHOSPHATE [Suspect]
     Active Substance: BETAMETHASONE SODIUM PHOSPHATE
     Dosage: TWO DROPS, TWO HOURLY, REDUCING GRADUALLY, FOR A WEEK
     Route: 065
     Dates: start: 20210817
  4. BETAMETHASONE SODIUM PHOSPHATE [Suspect]
     Active Substance: BETAMETHASONE SODIUM PHOSPHATE
     Dosage: TWO TO THREE DROPS EVERY TWO TO THREE HOURS, REDUCING GRADUALLY, FOR A WEEK
     Route: 065
     Dates: start: 20211004
  5. BETAMETHASONE SODIUM PHOSPHATE [Suspect]
     Active Substance: BETAMETHASONE SODIUM PHOSPHATE
     Dosage: TWO TO THREE DROPS, THREE OF FOUR TIMES A DAY
     Route: 065
     Dates: start: 20220110
  6. DEXAMETHASONE [Suspect]
     Active Substance: DEXAMETHASONE
     Indication: Eczema
     Dosage: TWO DROPS
     Dates: start: 20220214
  7. DOXYCYCLINE [Suspect]
     Active Substance: DOXYCYCLINE
     Indication: Product used for unknown indication
     Route: 065
     Dates: start: 20220114
  8. AVEENO [Concomitant]
     Active Substance: DIMETHICONE\HOMOSALATE\OCTINOXATE\OCTISALATE\TITANIUM DIOXIDE
     Indication: Eczema
     Dosage: UNKNOWN
     Route: 065
     Dates: start: 202202

REACTIONS (5)
  - Eye pain [Recovered/Resolved]
  - Ocular hyperaemia [Recovered/Resolved]
  - Foreign body sensation in eyes [Recovered/Resolved]
  - Eye disorder [Recovered/Resolved]
  - Hypersensitivity [Recovered/Resolved]
